FAERS Safety Report 11366944 (Version 1)
Quarter: 2015Q3

REPORT INFORMATION
  Report Type: Spontaneous
  Country: US (occurrence: US)
  Receive Date: 20150811
  Receipt Date: 20150811
  Transmission Date: 20151125
  Serious: No
  Sender: FDA-Public Use
  Company Number: US-ELI_LILLY_AND_COMPANY-US201107007953

PATIENT
  Sex: Male
  Weight: 92.52 kg

DRUGS (8)
  1. AXIRON [Suspect]
     Active Substance: TESTOSTERONE
     Indication: ANDROPAUSE
     Dosage: 90 MG, QD
     Dates: start: 20110603
  2. VITAMIN B12 [Concomitant]
     Active Substance: CYANOCOBALAMIN
     Dosage: 3000 UG, QD
  3. PERCOCET [Concomitant]
     Active Substance: ACETAMINOPHEN\OXYCODONE HYDROCHLORIDE
     Dosage: 325 MG, EVERY 4 HRS
  4. VITAMIN A [Concomitant]
     Active Substance: VITAMIN A
  5. METHOTREXATE [Concomitant]
     Active Substance: METHOTREXATE
     Dosage: 30 MG, WEEKLY (1/W) (EVERY MONDAY)
  6. TRAZODONE [Concomitant]
     Active Substance: TRAZODONE HYDROCHLORIDE
     Dosage: 200 MG, EACH EVENING
  7. NAPROXEN DELAYED-RELEASE [Concomitant]
     Active Substance: NAPROXEN
     Dosage: 1 DF - 500/20, BID
     Route: 048
  8. VITAMIN D [Concomitant]
     Active Substance: CHOLECALCIFEROL
     Dosage: 1.25 MG, WEEKLY (1/W)

REACTIONS (3)
  - Underdose [Unknown]
  - Stress [Recovered/Resolved]
  - Wrong technique in product usage process [Unknown]
